FAERS Safety Report 5219091-3 (Version None)
Quarter: 2007Q1

REPORT INFORMATION
  Report Type: 
  Country: None (occurrence: None)
  Receive Date: 20070124
  Receipt Date: 20070124
  Transmission Date: 20070707
  Serious: No
  Sender: FDA-Public Use
  Company Number: None

PATIENT
  Age: 65 Year
  Sex: Male
  Weight: 101.1521 kg

DRUGS (2)
  1. ATENOLOL [Suspect]
     Indication: HYPERTENSION
     Dosage: 25 MG  1 DAILY  ORAL
     Route: 048
     Dates: start: 20060917, end: 20061012
  2. ATENOLOL [Suspect]
     Indication: HYPERTENSION
     Dosage: 25 MG  1 DAILY  ORAL
     Route: 048
     Dates: start: 20061115, end: 20061201

REACTIONS (2)
  - DRUG INEFFECTIVE [None]
  - POOR QUALITY DRUG ADMINISTERED [None]
